FAERS Safety Report 13882030 (Version 2)
Quarter: 2017Q4

REPORT INFORMATION
  Report Type: Spontaneous
  Country: US (occurrence: US)
  Receive Date: 20170818
  Receipt Date: 20171027
  Transmission Date: 20180320
  Serious: Yes (Hospitalization)
  Sender: FDA-Public Use
  Company Number: US-ELI_LILLY_AND_COMPANY-US201708005055

PATIENT
  Age: 58 Year
  Sex: Male
  Weight: 107.1 kg

DRUGS (4)
  1. HYDROCHLOROTHIAZIDE. [Concomitant]
     Active Substance: HYDROCHLOROTHIAZIDE
     Dosage: 25 MG, UNKNOWN
     Route: 065
  2. TRULICITY [Suspect]
     Active Substance: DULAGLUTIDE
     Indication: TYPE 2 DIABETES MELLITUS
     Dosage: 0.75 MG, WEEKLY (1/W)
     Route: 058
     Dates: start: 20170804, end: 20170804
  3. FARXIGA [Concomitant]
     Active Substance: DAPAGLIFLOZIN PROPANEDIOL
     Indication: DIABETES MELLITUS
     Dosage: 5 MG, DAILY
     Route: 065
  4. LANTUS [Concomitant]
     Active Substance: INSULIN GLARGINE
     Indication: DIABETES MELLITUS
     Dosage: 40 U, AT NIGHT
     Route: 065

REACTIONS (16)
  - Nausea [Recovering/Resolving]
  - Oesophageal injury [Recovering/Resolving]
  - Pain [Unknown]
  - Blood glucose increased [Unknown]
  - Hypertension [Unknown]
  - Back pain [Unknown]
  - Abdominal pain [Recovering/Resolving]
  - Glycosylated haemoglobin increased [Unknown]
  - Dysphagia [Recovering/Resolving]
  - Insomnia [Unknown]
  - Vomiting [Recovering/Resolving]
  - Oropharyngeal pain [Unknown]
  - Dyspnoea [Recovering/Resolving]
  - Asthenia [Unknown]
  - Chest pain [Recovering/Resolving]
  - Lipids increased [Unknown]

NARRATIVE: CASE EVENT DATE: 20170804
